FAERS Safety Report 6142329-5 (Version None)
Quarter: 2009Q2

REPORT INFORMATION
  Report Type: 
  Country: None (occurrence: None)
  Receive Date: 20090403
  Receipt Date: 20090324
  Transmission Date: 20091009
  Serious: Yes (Hospitalization)
  Sender: FDA-Public Use
  Company Number: DE-PFIZER INC-2006029923

PATIENT

DRUGS (6)
  1. SUNITINIB MALATE [Suspect]
     Indication: METASTATIC RENAL CELL CARCINOMA
     Dosage: 50 MG, 1X/DAY
     Route: 048
     Dates: start: 20060116
  2. REPAGLINIDE [Concomitant]
     Route: 048
     Dates: start: 19920101, end: 20071024
  3. SIMVASTATIN [Concomitant]
     Route: 048
     Dates: start: 20000101, end: 20060825
  4. LOPERAMIDE [Concomitant]
     Route: 048
     Dates: start: 20060127, end: 20060202
  5. METOCLOPRAMIDE [Concomitant]
     Route: 048
     Dates: start: 20060130, end: 20060202
  6. ELECTROLYTE SOLUTIONS [Concomitant]

REACTIONS (2)
  - DYSPNOEA [None]
  - PLEURAL EFFUSION [None]
